FAERS Safety Report 9613820 (Version 1)
Quarter: 2013Q4

REPORT INFORMATION
  Report Type: Spontaneous
  Country: US (occurrence: US)
  Receive Date: 20131010
  Receipt Date: 20131010
  Transmission Date: 20140711
  Serious: No
  Sender: FDA-Public Use
  Company Number: US-ALLERGAN-1218393US

PATIENT
  Age: 56 Year
  Sex: Female

DRUGS (3)
  1. VANIQA [Suspect]
     Indication: HAIR GROWTH ABNORMAL
     Dosage: APPLIED ON THE JAWLINE, CHEEKS, SIDE AND FRONT OF HER NECK, AND NOSE
     Route: 061
     Dates: start: 2005, end: 201209
  2. VANIQA [Suspect]
     Dosage: APPLIED ON THE JAWLINE, CHEEKS, SIDE AND FRONT OF HER NECK, AND NOSE
     Route: 061
     Dates: start: 20120910, end: 20120911
  3. VANIQA [Suspect]
     Dosage: APPLIED ON THE JAWLINE, CHEEKS, SIDE AND FRONT OF HER NECK, AND NOSE
     Route: 061
     Dates: start: 201209, end: 201209

REACTIONS (2)
  - Acne [Recovered/Resolved]
  - Erythema [Recovered/Resolved]
